FAERS Safety Report 20262193 (Version 1)
Quarter: 2021Q4

REPORT INFORMATION
  Report Type: Spontaneous
  Country: CA (occurrence: CA)
  Receive Date: 20211231
  Receipt Date: 20211231
  Transmission Date: 20220303
  Serious: Yes (Other)
  Sender: FDA-Public Use
  Company Number: CA-SUN PHARMACEUTICAL INDUSTRIES LTD-2021R1-321719

PATIENT
  Sex: Male
  Weight: 3.045 kg

DRUGS (1)
  1. PREDNISONE [Suspect]
     Active Substance: PREDNISONE
     Indication: Focal segmental glomerulosclerosis
     Dosage: UNK (50 MG)
     Route: 064

REACTIONS (3)
  - Renal impairment [Recovered/Resolved]
  - Proteinuria [Recovered/Resolved]
  - Foetal exposure during pregnancy [Unknown]
